FAERS Safety Report 8617237-8 (Version None)
Quarter: 2012Q3

REPORT INFORMATION
  Report Type: 
  Country: None (occurrence: None)
  Receive Date: 20120823
  Receipt Date: 20120817
  Transmission Date: 20120928
  Serious: Yes (Other)
  Sender: FDA-Public Use
  Company Number: JP-ROCHE-1105077

PATIENT
  Sex: Male

DRUGS (7)
  1. MIRCERA [Suspect]
     Indication: NEPHROGENIC ANAEMIA
     Route: 042
     Dates: start: 20120531, end: 20120614
  2. ALLOPURINOL [Concomitant]
     Indication: GLOMERULONEPHRITIS CHRONIC
     Route: 048
  3. FOSRENOL [Concomitant]
     Indication: GLOMERULONEPHRITIS CHRONIC
     Route: 048
  4. RABEPRAZOLE SODIUM [Concomitant]
     Route: 048
  5. LASIX [Concomitant]
     Indication: GLOMERULONEPHRITIS CHRONIC
     Route: 048
  6. ASPIRIN [Concomitant]
     Route: 048
  7. DIART [Concomitant]
     Indication: GLOMERULONEPHRITIS CHRONIC
     Route: 048

REACTIONS (2)
  - DECREASED APPETITE [None]
  - DIZZINESS [None]
